FAERS Safety Report 8767779 (Version 3)
Quarter: 2013Q1

REPORT INFORMATION
  Report Type: Report from Study
  Country: US (occurrence: US)
  Receive Date: 20120905
  Receipt Date: 20130222
  Transmission Date: 20140127
  Serious: Yes (Hospitalization)
  Sender: FDA-Public Use
  Company Number: US-ROCHE-1075145

PATIENT
  Age: 37 Year
  Sex: Female
  Weight: 66.8 kg

DRUGS (15)
  1. BLINDED PERTUZUMAB [Suspect]
     Indication: BREAST CANCER
     Dosage: LAST DOSE PRIOR TO SAE: 15/AUG/2012
     Route: 042
     Dates: start: 20120523
  2. TRASTUZUMAB [Suspect]
     Indication: BREAST CANCER
     Dosage: LAST DOSE PRIOR TO SAE: 15/AUG/2012
     Route: 042
     Dates: start: 20120523
  3. TRASTUZUMAB [Suspect]
     Dosage: LAST DOSE PRIOR TO SAE: 15/AUG/2012
     Route: 042
     Dates: start: 20120523
  4. DOCETAXEL [Suspect]
     Indication: BREAST CANCER
     Dosage: LAST DOSE PRIOR TO SAE: 15/AUG/2012
     Route: 042
     Dates: start: 20120523
  5. CARBOPLATIN [Suspect]
     Indication: BREAST CANCER
     Dosage: LAST DOSE PRIOR TO SAE: AUC=6, 15/AUG/2012, DOSE: 6 MG/ML/MIN
     Route: 042
     Dates: start: 20120523
  6. XANAX [Concomitant]
     Route: 065
     Dates: start: 201203
  7. XANAX [Concomitant]
     Route: 065
     Dates: start: 201103
  8. XANAX [Concomitant]
     Route: 065
     Dates: start: 201103
  9. FISH OIL [Concomitant]
     Route: 065
     Dates: start: 201103
  10. MELATONIN [Concomitant]
     Route: 065
     Dates: start: 201203
  11. VICODIN [Concomitant]
     Dosage: 5/600
     Route: 065
     Dates: start: 20120404
  12. OMEPRAZOLE [Concomitant]
     Route: 065
     Dates: start: 20120612
  13. LOMOTIL [Concomitant]
     Route: 065
     Dates: start: 20120612, end: 20120824
  14. LOMOTIL [Concomitant]
     Route: 065
  15. VITAMIN C [Concomitant]
     Route: 065
     Dates: start: 20120612

REACTIONS (4)
  - Neutrophil count decreased [Recovered/Resolved]
  - Neutropenia [Recovered/Resolved]
  - Diarrhoea [Recovering/Resolving]
  - Fatigue [Recovered/Resolved]
